FAERS Safety Report 6877140-0 (Version None)
Quarter: 2010Q3

REPORT INFORMATION
  Report Type: 
  Country: None (occurrence: None)
  Receive Date: 20100727
  Receipt Date: 20100520
  Transmission Date: 20110219
  Serious: Yes (Death, Other)
  Sender: FDA-Public Use
  Company Number: PT-ROCHE-717003

PATIENT

DRUGS (1)
  1. AVASTIN [Suspect]
     Route: 065

REACTIONS (2)
  - DEATH [None]
  - DISEASE PROGRESSION [None]
